FAERS Safety Report 4625345-1 (Version None)
Quarter: 2005Q2

REPORT INFORMATION
  Report Type: 
  Country: None (occurrence: None)
  Receive Date: 20050401
  Receipt Date: 20050208
  Transmission Date: 20051028
  Serious: Yes (Life-Threatening)
  Sender: FDA-Public Use
  Company Number: JP-GLAXOSMITHKLINE-B0370665A

PATIENT
  Age: 62 Year
  Sex: Male
  Weight: 63 kg

DRUGS (9)
  1. VALTREX [Suspect]
     Indication: HERPES SIMPLEX
     Dosage: 500MG THREE TIMES PER DAY
     Route: 048
     Dates: start: 20030602, end: 20030609
  2. CALCIUM CARBONATE [Concomitant]
     Route: 048
     Dates: start: 20000124
  3. UBIDECARENONE [Concomitant]
     Dosage: 20MG PER DAY
     Route: 048
     Dates: start: 20000124
  4. JUVELA NICOTINATE [Concomitant]
     Route: 048
     Dates: start: 20000124
  5. FRUSEMIDE [Concomitant]
     Dosage: 120MG PER DAY
     Route: 048
     Dates: start: 20000124
  6. TICLOPIDINE HCL [Concomitant]
     Dosage: 200MG PER DAY
     Route: 048
     Dates: start: 20000124
  7. ALLOPURINOL [Concomitant]
     Dosage: 100MG PER DAY
     Route: 048
     Dates: start: 20000124
  8. SENNOSIDE [Concomitant]
     Dosage: 24MG PER DAY
     Route: 048
     Dates: start: 20000124
  9. FLUNITRAZEPAM [Concomitant]
     Dosage: 1.5MG PER DAY
     Route: 048
     Dates: start: 20000124

REACTIONS (5)
  - BLOOD PRESSURE SYSTOLIC DECREASED [None]
  - DYSLALIA [None]
  - DYSSTASIA [None]
  - GAIT DISTURBANCE [None]
  - LOSS OF CONSCIOUSNESS [None]
